FAERS Safety Report 13639905 (Version 1)
Quarter: 2017Q2

REPORT INFORMATION
  Report Type: Spontaneous
  Country: US (occurrence: US)
  Receive Date: 20170609
  Receipt Date: 20170609
  Transmission Date: 20170830
  Serious: No
  Sender: FDA-Public Use
  Company Number: US-ROCHE-1362978

PATIENT
  Sex: Female

DRUGS (2)
  1. KLONOPIN [Suspect]
     Active Substance: CLONAZEPAM
     Indication: ANXIETY
     Route: 065
     Dates: start: 201312
  2. KLONOPIN [Suspect]
     Active Substance: CLONAZEPAM
     Indication: SEIZURE

REACTIONS (10)
  - Fear [Unknown]
  - Blood pressure increased [Unknown]
  - Epileptic aura [Unknown]
  - Panic reaction [Unknown]
  - Anxiety [Unknown]
  - Tremor [Unknown]
  - Heart rate increased [Unknown]
  - Drug use disorder [Unknown]
  - Feeling abnormal [Unknown]
  - Pregnancy [Unknown]
